FAERS Safety Report 19741010 (Version 1)
Quarter: 2021Q3

REPORT INFORMATION
  Report Type: Spontaneous
  Country: FR (occurrence: FR)
  Receive Date: 20210825
  Receipt Date: 20210825
  Transmission Date: 20211014
  Serious: Yes (Hospitalization)
  Sender: FDA-Public Use
  Company Number: FR-ABBVIE-21K-056-4050459-00

PATIENT
  Age: 95 Year
  Sex: Female

DRUGS (3)
  1. VENCLYXTO [Suspect]
     Active Substance: VENETOCLAX
     Indication: THYROID DISORDER
  2. VENCLYXTO [Suspect]
     Active Substance: VENETOCLAX
     Indication: CHRONIC LYMPHOCYTIC LEUKAEMIA
     Route: 048
  3. VENCLYXTO [Suspect]
     Active Substance: VENETOCLAX
     Indication: HYPERTENSION

REACTIONS (3)
  - Off label use [Unknown]
  - Adverse reaction [Unknown]
  - Fracture [Unknown]

NARRATIVE: CASE EVENT DATE: 2021
